FAERS Safety Report 24334201 (Version 1)
Quarter: 2024Q3

REPORT INFORMATION
  Report Type: Report from Study
  Country: IL (occurrence: IL)
  Receive Date: 20240918
  Receipt Date: 20240918
  Transmission Date: 20241017
  Serious: Yes (Other)
  Sender: MERCK KGAA
  Company Number: IL-Merck Healthcare KGaA-2024048200

PATIENT
  Age: 64 Year
  Sex: Female

DRUGS (1)
  1. EUTHYROX [Suspect]
     Active Substance: LEVOTHYROXINE SODIUM
     Indication: Product used for unknown indication

REACTIONS (3)
  - Impaired gastric emptying [Not Recovered/Not Resolved]
  - Blood cholesterol abnormal [Unknown]
  - Back pain [Unknown]
